FAERS Safety Report 11536595 (Version 1)
Quarter: 2015Q3

REPORT INFORMATION
  Report Type: Spontaneous
  Country: None (occurrence: None)
  Receive Date: 20150921
  Receipt Date: 20150921
  Transmission Date: 20151125
  Serious: Yes (Life-Threatening)
  Sender: FDA-Public Use
  Company Number: None

PATIENT
  Age: 62 Year
  Sex: Female
  Weight: 83.92 kg

DRUGS (10)
  1. ENOXAPARIN [Suspect]
     Active Substance: ENOXAPARIN
     Dates: start: 20150828
  2. OXYCODONE [Concomitant]
     Active Substance: OXYCODONE
  3. CYCLOBENZAPRINE [Concomitant]
     Active Substance: CYCLOBENZAPRINE
  4. PROMETHAZINE [Concomitant]
     Active Substance: PROMETHAZINE\PROMETHAZINE HYDROCHLORIDE
  5. HYDROMORPHONE [Concomitant]
     Active Substance: HYDROMORPHONE
  6. ONDANSETRON [Concomitant]
     Active Substance: ONDANSETRON
  7. FENTANYL. [Concomitant]
     Active Substance: FENTANYL
  8. HEPARIN [Suspect]
     Active Substance: HEPARIN SODIUM
     Dates: start: 20150828
  9. NS PLASMA-LYTE A [Concomitant]
  10. ACETAMINOPHEN. [Concomitant]
     Active Substance: ACETAMINOPHEN

REACTIONS (1)
  - Pelvic haematoma [None]

NARRATIVE: CASE EVENT DATE: 20150828
